FAERS Safety Report 26094858 (Version 1)
Quarter: 2025Q4

REPORT INFORMATION
  Report Type: Report from Study
  Country: CA (occurrence: CA)
  Receive Date: 20251126
  Receipt Date: 20251126
  Transmission Date: 20260118
  Serious: Yes (Hospitalization, Other)
  Sender: ABBVIE
  Company Number: CA-ABBVIE-6546989

PATIENT
  Age: 35 Year
  Sex: Female

DRUGS (2)
  1. SKYRIZI [Suspect]
     Active Substance: RISANKIZUMAB-RZAA
     Indication: Crohn^s disease
     Dosage: AT WEEK 0,?FORM STRENGTH: 600 MG
     Route: 042
     Dates: start: 20250728, end: 20250728
  2. SKYRIZI [Suspect]
     Active Substance: RISANKIZUMAB-RZAA
     Indication: Crohn^s disease
     Dosage: WEEK 4 ?FORM STRENGTH: 600 MG
     Route: 042
     Dates: start: 20250825, end: 20250825

REACTIONS (4)
  - Anal abscess [Recovering/Resolving]
  - Pain [Recovering/Resolving]
  - Urine analysis abnormal [Recovering/Resolving]
  - Renal surgery [Recovering/Resolving]

NARRATIVE: CASE EVENT DATE: 20251001
